FAERS Safety Report 10255363 (Version 2)
Quarter: 2014Q3

REPORT INFORMATION
  Report Type: Spontaneous
  Country: US (occurrence: US)
  Receive Date: 20140624
  Receipt Date: 20140710
  Transmission Date: 20150326
  Serious: No
  Sender: FDA-Public Use
  Company Number: US-PFIZER INC-2014167727

PATIENT
  Age: 48 Year
  Sex: Male

DRUGS (7)
  1. BUMEX [Concomitant]
     Active Substance: BUMETANIDE
     Dosage: UNK
  2. FUROSEMIDE. [Concomitant]
     Active Substance: FUROSEMIDE
     Dosage: UNK
  3. ZANAFLEX [Concomitant]
     Active Substance: TIZANIDINE HYDROCHLORIDE
     Dosage: UNK
  4. LYRICA [Suspect]
     Active Substance: PREGABALIN
     Dosage: 10 MG, 3X/DAY
     Route: 048
  5. AVINZA [Concomitant]
     Active Substance: MORPHINE SULFATE
     Dosage: UNK
  6. STAXYN [Concomitant]
     Active Substance: VARDENAFIL HYDROCHLORIDE TRIHYDRATE
     Dosage: UNK
  7. TIZADINE [Concomitant]
     Dosage: UNK

REACTIONS (4)
  - Feeling abnormal [Unknown]
  - Pain [Unknown]
  - Fear [Unknown]
  - Stress [Unknown]

NARRATIVE: CASE EVENT DATE: 2014
